FAERS Safety Report 7936583-4 (Version None)
Quarter: 2011Q4

REPORT INFORMATION
  Report Type: 
  Country: None (occurrence: None)
  Receive Date: 20111123
  Receipt Date: 20111011
  Transmission Date: 20120403
  Serious: No
  Sender: FDA-Public Use
  Company Number: US-BAYER-2011-099859

PATIENT
  Age: 80 Year
  Sex: Male

DRUGS (3)
  1. IBUPROFEN [Concomitant]
     Dosage: UNK UNK, PRN
  2. LEVITRA [Suspect]
     Indication: ERECTILE DYSFUNCTION
     Dosage: 20 MG, PRN
     Route: 048
     Dates: start: 20110901, end: 20111001
  3. FINASTERIDE [Concomitant]
     Indication: DYSURIA
     Dosage: 5 MG, QD

REACTIONS (1)
  - DRUG INEFFECTIVE [None]
